FAERS Safety Report 10985575 (Version 1)
Quarter: 2015Q2

REPORT INFORMATION
  Report Type: Spontaneous
  Country: US (occurrence: US)
  Receive Date: 20150404
  Receipt Date: 20150404
  Transmission Date: 20150821
  Serious: No
  Sender: FDA-Public Use
  Company Number: US-SA-2014SA173611

PATIENT
  Age: 61 Year
  Sex: Female

DRUGS (1)
  1. ALLEGRA-D 24 HOUR [Suspect]
     Active Substance: FEXOFENADINE HYDROCHLORIDE\PSEUDOEPHEDRINE HYDROCHLORIDE
     Indication: MULTIPLE ALLERGIES
     Dosage: SHE TOOK ONE TABLET YESTERDAY MORNING AT 9 AM
     Route: 048
     Dates: start: 20141211

REACTIONS (2)
  - Insomnia [Unknown]
  - Expired product administered [Unknown]

NARRATIVE: CASE EVENT DATE: 20141211
